FAERS Safety Report 11758454 (Version 6)
Quarter: 2016Q4

REPORT INFORMATION
  Report Type: Spontaneous
  Country: US (occurrence: US)
  Receive Date: 20151120
  Receipt Date: 20161027
  Transmission Date: 20170206
  Serious: Yes (Hospitalization, Other)
  Sender: FDA-Public Use
  Company Number: US-PFIZER INC-2015385134

PATIENT
  Age: 59 Year
  Sex: Male
  Weight: 147 kg

DRUGS (40)
  1. CARVEDILOL. [Concomitant]
     Active Substance: CARVEDILOL
     Dosage: 25 MG, 2X/DAY
     Route: 048
  2. CYCLOBENZAPRINE [Concomitant]
     Active Substance: CYCLOBENZAPRINE
     Dosage: 10 MG, DAILY
     Route: 048
  3. METFORMIN [Concomitant]
     Active Substance: METFORMIN HYDROCHLORIDE
     Dosage: 1000 MG, 2X/DAY (WITH FOOD)
     Route: 048
  4. MULTAQ [Concomitant]
     Active Substance: DRONEDARONE
     Dosage: 400 MG, 2X/DAY
     Route: 048
  5. NEXIUM [Concomitant]
     Active Substance: ESOMEPRAZOLE MAGNESIUM
     Dosage: 40 MG, DAILY (EVERY DAY)
     Route: 048
  6. VITAMIN D2 [Concomitant]
     Active Substance: ERGOCALCIFEROL
     Dosage: 50000 IU, WEEKLY (EVERY WEEK)
     Route: 048
  7. AQUORAL [Concomitant]
     Indication: DRY MOUTH
     Dosage: USE 2 SPRAYS ORALLY Q 8 HOURS PRN
     Route: 048
  8. BOOSTRIX [Concomitant]
     Active Substance: TETANUS TOXOID, REDUCED DIPHTHERIA TOXOID AND ACELLULAR PERTUSSIS VACCINE, ADSORBED ANTIGENS
     Dosage: 2.5 LF UNIT-8 MCG-5 LF/0.5 ML INTRAMUSCULAR SUSPENSION, INJECT 0.5 ML INTRAMUSCULARLY AS DIRECTED
     Route: 030
  9. DULOXETINE. [Concomitant]
     Active Substance: DULOXETINE
     Dosage: 60 MG, DAILY
     Route: 048
  10. HYDROCHLOROTHIAZIDE. [Concomitant]
     Active Substance: HYDROCHLOROTHIAZIDE
     Dosage: 12.5 MG, DAILY
     Route: 048
  11. LYRICA [Suspect]
     Active Substance: PREGABALIN
     Indication: CERVICAL SPINAL STENOSIS
  12. ALLOPURINOL. [Concomitant]
     Active Substance: ALLOPURINOL
     Dosage: 100 MG TABLET, 1 + 1/2 TABLET BY MOUTH ONCE A DAY)
     Route: 048
  13. CEPHALEXIN. [Concomitant]
     Active Substance: CEPHALEXIN
     Dosage: 500 MG, 3X/DAY
     Route: 048
  14. COSENTYX [Concomitant]
     Active Substance: SECUKINUMAB
     Dosage: 150 MG/ML
     Route: 058
  15. LATANOPROST. [Concomitant]
     Active Substance: LATANOPROST
     Dosage: 0.005 % EYE DROPS, INSTILL A DROP IN BOTH EYES AT BEDTIME
  16. LISINOPRIL. [Concomitant]
     Active Substance: LISINOPRIL
     Dosage: 10 MG, 2X/DAY
     Route: 048
  17. PRAVASTATIN. [Concomitant]
     Active Substance: PRAVASTATIN
     Dosage: 40 MG, DAILY (80 MG  1/2 TAB)
  18. AXIRON [Concomitant]
     Active Substance: TESTOSTERONE
     Dosage: 30 MG/ACTUATION (1.5 ML) TRANSDERM SOLUTION IN METERED PUMP, APPLY 1 PUMP(S) EVERY DAY
     Route: 061
  19. HYDROCODONE/ACETAMINOPHEN [Concomitant]
     Active Substance: ACETAMINOPHEN\HYDROCODONE
     Dosage: 1 TABLET  TWICE DAILY AS NEEDED ( (HYDROCODONE BITARTRATE 10 MG, ACETAMINOPHEN 325 MG)
     Route: 048
  20. METHOCARBAMOL. [Concomitant]
     Active Substance: METHOCARBAMOL
     Dosage: 500 MG, UNK
  21. OMEPRAZOLE. [Concomitant]
     Active Substance: OMEPRAZOLE
     Dosage: 20 MG, 2X/DAY
     Route: 048
  22. VITAMIN D3 [Concomitant]
     Active Substance: CHOLECALCIFEROL
     Dosage: 5000 IU, UNK
     Route: 048
  23. CIMZIA [Concomitant]
     Active Substance: CERTOLIZUMAB PEGOL
     Dosage: 200 MG, SQ EVER TWO WEEKS
  24. CYANOCOBALAMIN (VIT B-12) [Concomitant]
     Dosage: 1,000 MCG/ML INJECTION SOLUTION 1CC QM
     Dates: start: 20130701
  25. DIPHENOXYLATE/ATROPINE [Concomitant]
     Active Substance: ATROPINE\DIPHENOXYLATE
     Dosage: 2.5 MG-0.025 MG TABLET AS NEEDED
  26. ENBREL [Concomitant]
     Active Substance: ETANERCEPT
     Dosage: 50 MG, WEEKLY ( 50 MG/ML (0.98 ML) UNDER THE SKIN EVERY WEEK AS DIRECTED)
     Route: 058
  27. HYDROCHLOROTHIAZIDE. [Concomitant]
     Active Substance: HYDROCHLOROTHIAZIDE
     Dosage: 25 MG, DAILY
     Route: 048
  28. IRON [Concomitant]
     Active Substance: IRON
     Dosage: UNK, DAILY
  29. OXYCODONE-ACETAMINOPHEN [Concomitant]
     Active Substance: ACETAMINOPHEN\OXYCODONE HYDROCHLORIDE
     Indication: PAIN
     Dosage: 5 MG-325 MG TABLET, TAKE 1 TO 2 TABLETS BY MOUTH EVERY 4 TO 6 HOURS AS NEEDED
     Route: 048
  30. TRAMADOL. [Concomitant]
     Active Substance: TRAMADOL
     Dosage: 50 MG TABLET,1 TO 2 TABLETS BY MOUTH 4 TIMES A DAY AS NEEDED
     Route: 048
  31. LYRICA [Suspect]
     Active Substance: PREGABALIN
     Indication: NERVE INJURY
     Dosage: 75 MG, 2X/DAY (EVERY 12 HOURS)
     Route: 048
  32. LYRICA [Suspect]
     Active Substance: PREGABALIN
     Indication: NEURALGIA
  33. LYRICA [Suspect]
     Active Substance: PREGABALIN
     Indication: FIBROMYALGIA
  34. COLCHICINE. [Concomitant]
     Active Substance: COLCHICINE
     Dosage: 0.6 MG, DAILY
     Route: 048
  35. INDOMETHACIN. [Concomitant]
     Active Substance: INDOMETHACIN
     Indication: PAIN
     Dosage: 75 MG, TAKE ONE CAPSULE  EVERY DAY AS NEEDED
     Route: 048
  36. LISINOPRIL. [Concomitant]
     Active Substance: LISINOPRIL
     Dosage: 40 MG, 2X/DAY
     Route: 048
  37. ASPIRIN. [Concomitant]
     Active Substance: ASPIRIN
     Dosage: 81 MG, DAILY (EVERY DAY)
     Route: 048
  38. PILOCARPINE. [Concomitant]
     Active Substance: PILOCARPINE
     Dosage: 1 %, UNK
  39. EXFORGE [Concomitant]
     Active Substance: AMLODIPINE BESYLATE\VALSARTAN
     Dosage: 1 DF DAILY (10 MG-320 MG )
     Route: 048
  40. TAMSULOSIN [Concomitant]
     Active Substance: TAMSULOSIN
     Dosage: 0.4 MG, 2X/DAY
     Route: 048

REACTIONS (1)
  - Neuralgia [Recovering/Resolving]
